FAERS Safety Report 24086922 (Version 1)
Quarter: 2024Q3

REPORT INFORMATION
  Report Type: Report from Study
  Country: CA (occurrence: CA)
  Receive Date: 20240713
  Receipt Date: 20240713
  Transmission Date: 20241017
  Serious: Yes (Other)
  Sender: TEVA
  Company Number: CA-TEVA-VS-3219201

PATIENT
  Age: 62 Year
  Sex: Female

DRUGS (6)
  1. CINQAIR [Suspect]
     Active Substance: RESLIZUMAB
     Indication: Asthma
     Dosage: LAST INFUSION DATE: 03-JUL-2024
     Route: 042
     Dates: start: 20190418
  2. VENTOLIN [Concomitant]
     Active Substance: ALBUTEROL SULFATE
     Dosage: NUBULE
  3. VENTOLIN [Concomitant]
     Active Substance: ALBUTEROL SULFATE
     Dosage: PUFFER
  4. LOSARTAN [Concomitant]
     Active Substance: LOSARTAN
  5. PANTOPRAZOLE SODIUM [Concomitant]
     Active Substance: PANTOPRAZOLE SODIUM
  6. SYMBICORT [Concomitant]
     Active Substance: BUDESONIDE\FORMOTEROL FUMARATE DIHYDRATE

REACTIONS (1)
  - Cataract [Unknown]
